FAERS Safety Report 18908924 (Version 1)
Quarter: 2021Q1

REPORT INFORMATION
  Report Type: Spontaneous
  Country: FR (occurrence: FR)
  Receive Date: 20210218
  Receipt Date: 20210218
  Transmission Date: 20210420
  Serious: Yes (Other)
  Sender: FDA-Public Use
  Company Number: FR-AMGEN-FRASP2021023921

PATIENT
  Age: 68 Year
  Sex: Female

DRUGS (7)
  1. LUMIGAN [Concomitant]
     Active Substance: BIMATOPROST
     Dosage: UNK
  2. FORSTEO [Concomitant]
     Active Substance: TERIPARATIDE
  3. XARELTO [Concomitant]
     Active Substance: RIVAROXABAN
     Dosage: UNK
  4. AERIUS (DESLORATADINE) [Concomitant]
     Active Substance: DESLORATADINE
  5. DEDROGYL [Concomitant]
     Active Substance: CALCIFEDIOL
     Dosage: UNK
  6. EFFERALGAN [Concomitant]
     Active Substance: ACETAMINOPHEN
     Dosage: UNK
  7. PROLIA [Suspect]
     Active Substance: DENOSUMAB
     Indication: OSTEOPOROSIS
     Dosage: UNK
     Route: 065

REACTIONS (2)
  - Drug hypersensitivity [Unknown]
  - Thoracic vertebral fracture [Unknown]

NARRATIVE: CASE EVENT DATE: 2019
